FAERS Safety Report 7423462 (Version 3)
Quarter: 2017Q1

REPORT INFORMATION
  Report Type: Report from Study
  Country: FR (occurrence: FR)
  Receive Date: 20100617
  Receipt Date: 20170323
  Transmission Date: 20170429
  Serious: Yes (Other)
  Sender: FDA-Public Use
  Company Number: FR-ROCHE-709742

PATIENT

DRUGS (2)
  1. TRASTUZUMAB [Suspect]
     Active Substance: TRASTUZUMAB
     Indication: BREAST CANCER METASTATIC
     Route: 042
  2. PANOBINOSTAT [Suspect]
     Active Substance: PANOBINOSTAT
     Indication: BREAST CANCER METASTATIC
     Route: 048

REACTIONS (2)
  - Thrombocytopenia [Unknown]
  - Angina unstable [Unknown]
